FAERS Safety Report 8816841 (Version 1)
Quarter: 2012Q4

REPORT INFORMATION
  Report Type: Spontaneous
  Country: US (occurrence: None)
  Receive Date: 20121001
  Receipt Date: 20121001
  Transmission Date: 20130627
  Serious: Yes (Hospitalization, Other)
  Sender: FDA-Public Use
  Company Number: None

PATIENT
  Age: 22 Year
  Sex: Female
  Weight: 83.92 kg

DRUGS (1)
  1. MIRENA [Suspect]
     Indication: BIRTH CONTROL
     Dosage: 1 every 5+ years Intra-uterine
     Route: 015
     Dates: start: 20100610, end: 20110315

REACTIONS (6)
  - Pelvic pain [None]
  - Abdominal discomfort [None]
  - Gastric infection [None]
  - Appendicitis [None]
  - Medical device complication [None]
  - Device dislocation [None]
